FAERS Safety Report 4507360-1 (Version None)
Quarter: 2004Q4

REPORT INFORMATION
  Report Type: 
  Country: None (occurrence: None)
  Receive Date: 20041118
  Receipt Date: 20041112
  Transmission Date: 20050328
  Serious: Yes (Hospitalization, Other)
  Sender: FDA-Public Use
  Company Number: KII-2004-0013983

PATIENT
  Age: 24 Year
  Sex: Female

DRUGS (4)
  1. MORPHINE SULFATE [Suspect]
     Indication: DRUG USE FOR UNKNOWN INDICATION
     Dosage: ORAL
     Route: 048
  2. ACETAMINOPHEN AND HYDROCODONE BITARTRATE [Suspect]
     Indication: DRUG USE FOR UNKNOWN INDICATION
     Dosage: ORAL
     Route: 048
  3. BENZODIAZEPINE DERIVATIVES () [Suspect]
     Indication: DRUG USE FOR UNKNOWN INDICATION
     Dosage: ORAL
     Route: 048
  4. ATROPINE W/DIPHENOXYLATE (ATROPINE SULFATE, DIPHENOXYLATE HYDROCHLORID [Suspect]
     Indication: DRUG USE FOR UNKNOWN INDICATION
     Dosage: ORAL
     Route: 048

REACTIONS (9)
  - AGONAL RHYTHM [None]
  - BLOOD PRESSURE DIASTOLIC INCREASED [None]
  - COMA [None]
  - MULTIPLE DRUG OVERDOSE [None]
  - PNEUMONIA [None]
  - RESPIRATION ABNORMAL [None]
  - RESPIRATORY RATE INCREASED [None]
  - SOMNOLENCE [None]
  - VOMITING [None]
